FAERS Safety Report 4555537-1 (Version None)
Quarter: 2005Q1

REPORT INFORMATION
  Report Type: 
  Country: None (occurrence: None)
  Receive Date: 20050119
  Receipt Date: 20050106
  Transmission Date: 20050727
  Serious: Yes (Hospitalization)
  Sender: FDA-Public Use
  Company Number: BE-BRISTOL-MYERS SQUIBB COMPANY-12827143

PATIENT
  Age: 40 Year

DRUGS (1)
  1. ATAZANAVIR [Suspect]
     Dosage: PATIENT D/C 15-NOV-2004 THERAPY WAS RESTARTED ON 24-DEC-2004

REACTIONS (2)
  - ENCEPHALITIS [None]
  - EPSTEIN-BARR VIRUS ANTIBODY POSITIVE [None]
